FAERS Safety Report 5364632-9 (Version None)
Quarter: 2007Q2

REPORT INFORMATION
  Report Type: 
  Country: None (occurrence: None)
  Receive Date: 20070530
  Receipt Date: 20070118
  Transmission Date: 20071010
  Serious: No
  Sender: FDA-Public Use
  Company Number: 2007PV028785

PATIENT
  Sex: Female

DRUGS (2)
  1. BYETTA [Suspect]
     Indication: DIABETES MELLITUS
     Dosage: 5 MCG;SC
     Route: 058
     Dates: start: 20061127, end: 20070101
  2. METFORMIN HCL [Concomitant]

REACTIONS (4)
  - DIZZINESS [None]
  - GLYCOSYLATED HAEMOGLOBIN DECREASED [None]
  - HYPERHIDROSIS [None]
  - HYPOGLYCAEMIA [None]
